FAERS Safety Report 13491339 (Version 2)
Quarter: 2017Q4

REPORT INFORMATION
  Report Type: Report from Study
  Country: KR (occurrence: KR)
  Receive Date: 20170427
  Receipt Date: 20171126
  Transmission Date: 20180320
  Serious: Yes (Death, Other)
  Sender: FDA-Public Use
  Company Number: KR-CELGENEUS-KOR-2017013752

PATIENT

DRUGS (2)
  1. REVLIMID [Suspect]
     Active Substance: LENALIDOMIDE
     Indication: PLASMA CELL MYELOMA
     Route: 048
  2. DEXAMETHASONE. [Suspect]
     Active Substance: DEXAMETHASONE
     Indication: PLASMA CELL MYELOMA
     Route: 065

REACTIONS (27)
  - Pulmonary embolism [Unknown]
  - Febrile neutropenia [Unknown]
  - Nervous system disorder [Unknown]
  - Insomnia [Unknown]
  - Electrolyte imbalance [Fatal]
  - Renal injury [Unknown]
  - Anaemia [Unknown]
  - Fatigue [Unknown]
  - Liver function test abnormal [Unknown]
  - Sepsis [Fatal]
  - Deep vein thrombosis [Unknown]
  - Rash [Unknown]
  - Dyspnoea [Unknown]
  - Blood disorder [Unknown]
  - Thrombosis [Unknown]
  - Constipation [Unknown]
  - Muscle spasms [Unknown]
  - Haemorrhage [Fatal]
  - Infection [Unknown]
  - Decreased appetite [Unknown]
  - Neutropenia [Unknown]
  - Diarrhoea [Unknown]
  - Cardiac disorder [Fatal]
  - Pneumonia [Unknown]
  - Thrombocytopenia [Unknown]
  - Nausea [Unknown]
  - Neuropathy peripheral [Unknown]
